FAERS Safety Report 21706528 (Version 1)
Quarter: 2022Q4

REPORT INFORMATION
  Report Type: Spontaneous
  Country: US (occurrence: None)
  Receive Date: 20221208
  Receipt Date: 20221208
  Transmission Date: 20230113
  Serious: No
  Sender: FDA-Public Use
  Company Number: None

PATIENT
  Age: 40 Year
  Sex: Female
  Weight: 67.5 kg

DRUGS (5)
  1. MOUNJARO [Suspect]
     Active Substance: TIRZEPATIDE
     Indication: Obesity
     Dosage: OTHER QUANTITY : 1 INJECTION(S);?OTHER ROUTE : INJECTED INTO STOMACH;?
     Route: 050
     Dates: start: 20220211, end: 20220905
  2. HYDROXYCHLOROQUINE [Concomitant]
     Active Substance: HYDROXYCHLOROQUINE
  3. PREVACID [Concomitant]
     Active Substance: LANSOPRAZOLE
  4. DULOXETINE [Concomitant]
     Active Substance: DULOXETINE
  5. LOSARTAN [Concomitant]
     Active Substance: LOSARTAN

REACTIONS (4)
  - Anxiety [None]
  - Panic attack [None]
  - Therapy interrupted [None]
  - Heart rate increased [None]

NARRATIVE: CASE EVENT DATE: 20221208
